FAERS Safety Report 8379038-8 (Version None)
Quarter: 2012Q2

REPORT INFORMATION
  Report Type: 
  Country: None (occurrence: None)
  Receive Date: 20120522
  Receipt Date: 20120522
  Transmission Date: 20120825
  Serious: Yes (Hospitalization)
  Sender: FDA-Public Use
  Company Number: None

PATIENT
  Age: 71 Year
  Sex: Female
  Weight: 75.7507 kg

DRUGS (4)
  1. AMOXICILLIN [Suspect]
     Indication: NASOPHARYNGITIS
     Dosage: 1 PILL BID .500/125 MG 2 TIMES DAILY ORALLY
     Route: 048
     Dates: start: 20120409
  2. AMOXICILLIN [Suspect]
     Indication: BRONCHITIS
     Dosage: 1 PILL BID .500/125 MG 2 TIMES DAILY ORALLY
     Route: 048
     Dates: start: 20120409
  3. AMOXICILLIN [Suspect]
     Indication: NASOPHARYNGITIS
     Dosage: 1 PILL BID .500/125 MG 2 TIMES DAILY ORALLY
     Route: 048
     Dates: start: 20120410
  4. AMOXICILLIN [Suspect]
     Indication: BRONCHITIS
     Dosage: 1 PILL BID .500/125 MG 2 TIMES DAILY ORALLY
     Route: 048
     Dates: start: 20120410

REACTIONS (4)
  - DEHYDRATION [None]
  - DIARRHOEA [None]
  - BLOOD POTASSIUM DECREASED [None]
  - VOMITING [None]
